FAERS Safety Report 16305085 (Version 1)
Quarter: 2019Q2

REPORT INFORMATION
  Report Type: Spontaneous
  Country: US (occurrence: US)
  Receive Date: 20190510
  Receipt Date: 20190510
  Transmission Date: 20190711
  Serious: Yes (Hospitalization)
  Sender: FDA-Public Use
  Company Number: None

PATIENT
  Age: 48 Year
  Sex: Female

DRUGS (3)
  1. ORENCIA [Suspect]
     Active Substance: ABATACEPT
     Indication: RHEUMATOID ARTHRITIS
     Dosage: ?          OTHER FREQUENCY:WEEKLY;?
     Route: 058
     Dates: start: 20170213
  2. VITAMIN D [Concomitant]
     Active Substance: VITAMIN D NOS
  3. MEXDROXYPR AC INJ [Concomitant]

REACTIONS (1)
  - Surgery [None]

NARRATIVE: CASE EVENT DATE: 20190228
